FAERS Safety Report 25156677 (Version 3)
Quarter: 2025Q3

REPORT INFORMATION
  Report Type: Spontaneous
  Country: US (occurrence: US)
  Receive Date: 20250403
  Receipt Date: 20250710
  Transmission Date: 20251020
  Serious: No
  Sender: SANOFI AVENTIS
  Company Number: US-SA-2025SA094868

PATIENT
  Age: 68 Year
  Sex: Female

DRUGS (1)
  1. KEVZARA [Suspect]
     Active Substance: SARILUMAB
     Indication: Polymyalgia rheumatica
     Dosage: 200 MG, QOW
     Route: 058

REACTIONS (11)
  - Cough [Unknown]
  - Dizziness [Unknown]
  - Vertigo [Unknown]
  - Hypertension [Unknown]
  - Heart rate increased [Unknown]
  - Abdominal pain upper [Unknown]
  - Dry skin [Unknown]
  - Injection site rash [Unknown]
  - Arthralgia [Unknown]
  - Fatigue [Unknown]
  - Injection site erythema [Unknown]
